FAERS Safety Report 24192276 (Version 2)
Quarter: 2025Q2

REPORT INFORMATION
  Report Type: Spontaneous
  Country: CN (occurrence: CN)
  Receive Date: 20240809
  Receipt Date: 20250608
  Transmission Date: 20250717
  Serious: Yes (Hospitalization)
  Sender: COHERUS
  Company Number: CN-SHANGHAI JUNSHI BIOSCIENCES CO., LTD.-CN2024010851

PATIENT

DRUGS (3)
  1. TORIPALIMAB [Suspect]
     Active Substance: TORIPALIMAB
     Indication: Triple negative breast cancer
     Dosage: 240 MG, EVERY 21 DAYS
     Route: 041
     Dates: start: 20240404, end: 202406
  2. PACLITAXEL [Concomitant]
     Active Substance: PACLITAXEL
     Indication: Triple negative breast cancer
     Route: 041
     Dates: start: 20240404
  3. CARBOPLATIN [Concomitant]
     Active Substance: CARBOPLATIN
     Indication: Triple negative breast cancer
     Route: 041
     Dates: start: 20240404

REACTIONS (6)
  - Respiratory failure [Unknown]
  - Hypertension [Unknown]
  - Pneumonia [Unknown]
  - Immune-mediated lung disease [Unknown]
  - Hypothyroidism [Unknown]
  - Eczema [Unknown]

NARRATIVE: CASE EVENT DATE: 20240702
